FAERS Safety Report 7047610-3 (Version None)
Quarter: 2010Q4

REPORT INFORMATION
  Report Type: 
  Country: None (occurrence: None)
  Receive Date: 20101015
  Receipt Date: 20101008
  Transmission Date: 20110411
  Serious: Yes (Other)
  Sender: FDA-Public Use
  Company Number: US-BRISTOL-MYERS SQUIBB COMPANY-15316813

PATIENT
  Age: 69 Year
  Sex: Male

DRUGS (5)
  1. METFORMIN HCL [Suspect]
  2. ENALAPRIL MALEATE [Suspect]
  3. SERTRALINE HYDROCHLORIDE [Suspect]
  4. HYDROCHLOROTHIAZIDE [Suspect]
  5. HERBAL MIXTURE [Suspect]

REACTIONS (1)
  - PSEUDOLYMPHOMA [None]
